FAERS Safety Report 13684941 (Version 1)
Quarter: 2017Q2

REPORT INFORMATION
  Report Type: Spontaneous
  Country: US (occurrence: US)
  Receive Date: 20170623
  Receipt Date: 20170623
  Transmission Date: 20170830
  Serious: No
  Sender: FDA-Public Use
  Company Number: US-NATCO PHARMA-2017NAT00062

PATIENT
  Age: 32 Year
  Sex: Female

DRUGS (3)
  1. ARMODAFINIL. [Suspect]
     Active Substance: ARMODAFINIL
     Dosage: 75 MG, 1X/DAY AT 3:15 PM
     Route: 048
  2. ALBUTEROL SULFATE. [Concomitant]
     Active Substance: ALBUTEROL SULFATE
     Dosage: 1-2 PUFFS AS NEEDED, USES TWICE PER MONTH
     Route: 048
  3. ARMODAFINIL. [Suspect]
     Active Substance: ARMODAFINIL
     Indication: NARCOLEPSY
     Dosage: 150 MG, 1X/DAY IN THE AM
     Route: 048

REACTIONS (6)
  - Unevaluable event [Unknown]
  - Somnolence [Unknown]
  - Contusion [Unknown]
  - Drug effect incomplete [Unknown]
  - Mood swings [Unknown]
  - Product substitution issue [Unknown]
